FAERS Safety Report 6124266-5 (Version None)
Quarter: 2009Q1

REPORT INFORMATION
  Report Type: 
  Country: None (occurrence: None)
  Receive Date: 20090317
  Receipt Date: 20090305
  Transmission Date: 20090719
  Serious: Yes (Hospitalization)
  Sender: FDA-Public Use
  Company Number: 232031K09USA

PATIENT
  Age: 41 Year
  Sex: Female
  Weight: 145 kg

DRUGS (7)
  1. REBIF [Suspect]
     Indication: MULTIPLE SCLEROSIS
     Dosage: 44 MCG, 3 IN 1 WEEKS, SUBCUTANEOUS
     Route: 058
     Dates: start: 20050224
  2. PREDNISONE [Suspect]
     Indication: MULTIPLE SCLEROSIS
     Dosage: 20 MG,
     Dates: start: 20040101
  3. SOLU-MEDROL [Suspect]
  4. LYRICA [Concomitant]
  5. ENALAPRIL (ENALAPRIL /00574901/) [Concomitant]
  6. CLONIDINE [Concomitant]
  7. INDOMETHACIN [Concomitant]

REACTIONS (6)
  - BLADDER DISORDER [None]
  - CONDITION AGGRAVATED [None]
  - DIABETES MELLITUS [None]
  - MULTIPLE SCLEROSIS [None]
  - OEDEMA PERIPHERAL [None]
  - SWELLING [None]
